FAERS Safety Report 6394175-5 (Version None)
Quarter: 2009Q4

REPORT INFORMATION
  Report Type: 
  Country: None (occurrence: None)
  Receive Date: 20091008
  Receipt Date: 20090929
  Transmission Date: 20100525
  Serious: Yes (Hospitalization)
  Sender: FDA-Public Use
  Company Number: JP-ABBOTT-09P-087-0558701-00

PATIENT
  Age: 80 Year
  Sex: Male

DRUGS (3)
  1. LEUPLIN SR FOR INJECTION 11.25 MG [Suspect]
     Indication: PROSTATE CANCER STAGE II
     Route: 058
     Dates: start: 20070308, end: 20070824
  2. LEUPLIN SR FOR INJECTION 11.25 MG [Suspect]
     Route: 058
     Dates: start: 20080804
  3. CHLORMADINONE ACETATE TAB [Concomitant]
     Indication: PROSTATE CANCER STAGE II
     Route: 048
     Dates: start: 20061211

REACTIONS (2)
  - FALL [None]
  - FEMORAL NECK FRACTURE [None]
